FAERS Safety Report 13830024 (Version 1)
Quarter: 2017Q3

REPORT INFORMATION
  Report Type: Spontaneous
  Country: US (occurrence: US)
  Receive Date: 20170803
  Receipt Date: 20170803
  Transmission Date: 20171127
  Serious: Yes (Other)
  Sender: FDA-Public Use
  Company Number: US-BAYER-2017-145349

PATIENT
  Age: 28 Year
  Sex: Female

DRUGS (2)
  1. MIRENA [Suspect]
     Active Substance: LEVONORGESTREL
     Dosage: 20 MCG/24HR, CONT
     Route: 015
     Dates: start: 20150805
  2. MIRENA [Suspect]
     Active Substance: LEVONORGESTREL
     Dosage: 20 MCG/24HR, CONT
     Route: 015
     Dates: start: 20100104, end: 20150805

REACTIONS (9)
  - Vomiting [None]
  - Idiopathic intracranial hypertension [None]
  - Blindness [None]
  - Back pain [None]
  - Neck pain [None]
  - Vision blurred [None]
  - Headache [None]
  - Nausea [None]
  - Musculoskeletal pain [None]

NARRATIVE: CASE EVENT DATE: 201207
